FAERS Safety Report 9185199 (Version 1)
Quarter: 2013Q1

REPORT INFORMATION
  Report Type: Spontaneous
  Country: IT (occurrence: IT)
  Receive Date: 20130325
  Receipt Date: 20130325
  Transmission Date: 20140127
  Serious: Yes (Hospitalization)
  Sender: FDA-Public Use
  Company Number: CHPA2013IT004844

PATIENT
  Age: 7 Year
  Sex: Female

DRUGS (4)
  1. IBUPROFEN [Suspect]
     Indication: PYREXIA
     Dosage: 14 ML, QD
     Route: 048
     Dates: start: 20121017, end: 20121020
  2. PERIDON [Concomitant]
     Indication: ABDOMINAL PAIN UPPER
     Route: 048
     Dates: start: 20121019, end: 20121020
  3. PERIDON [Concomitant]
     Indication: ABDOMINAL PAIN UPPER
     Dates: start: 20121020
  4. ALGINOR [Concomitant]
     Indication: ABDOMINAL PAIN UPPER
     Dates: start: 20121019, end: 20121020

REACTIONS (6)
  - Acute hepatic failure [Recovered/Resolved]
  - Chromaturia [Recovered/Resolved]
  - Tachypnoea [Recovered/Resolved]
  - Jaundice [Recovered/Resolved]
  - Renal failure [Recovered/Resolved]
  - Vomiting [Recovered/Resolved]
